FAERS Safety Report 14499097 (Version 1)
Quarter: 2018Q1

REPORT INFORMATION
  Report Type: Spontaneous
  Country: AR (occurrence: AR)
  Receive Date: 20180207
  Receipt Date: 20180207
  Transmission Date: 20180509
  Serious: Yes (Death, Hospitalization)
  Sender: FDA-Public Use
  Company Number: PHHY2018AR007175

PATIENT
  Age: 15 Year
  Sex: Male

DRUGS (2)
  1. DASATINIB. [Suspect]
     Active Substance: DASATINIB
     Indication: ACUTE LYMPHOCYTIC LEUKAEMIA
     Route: 065
  2. IMATINIB [Suspect]
     Active Substance: IMATINIB
     Indication: ACUTE LYMPHOCYTIC LEUKAEMIA
     Dosage: 300 MG/M2, QD
     Route: 048
     Dates: start: 20160614, end: 20170326

REACTIONS (3)
  - Acute lymphocytic leukaemia recurrent [Unknown]
  - Drug resistance [Unknown]
  - Death [Fatal]

NARRATIVE: CASE EVENT DATE: 20180128
